FAERS Safety Report 6401464-4 (Version None)
Quarter: 2009Q4

REPORT INFORMATION
  Report Type: 
  Country: None (occurrence: None)
  Receive Date: 20091015
  Receipt Date: 20091006
  Transmission Date: 20100525
  Serious: Yes (Hospitalization)
  Sender: FDA-Public Use
  Company Number: JP-BRISTOL-MYERS SQUIBB COMPANY-14784524

PATIENT
  Age: 40 Year
  Sex: Male
  Weight: 60 kg

DRUGS (13)
  1. ABILIFY [Suspect]
     Indication: SCHIZOPHRENIA
     Dosage: ABILIFY TABLET 12MG
     Route: 048
     Dates: start: 20090525, end: 20090526
  2. ABILIFY [Suspect]
     Indication: HALLUCINATION
     Dosage: ABILIFY TABLET 12MG
     Route: 048
     Dates: start: 20090525, end: 20090526
  3. ABILIFY [Suspect]
     Indication: DELUSION
     Dosage: ABILIFY TABLET 12MG
     Route: 048
     Dates: start: 20090525, end: 20090526
  4. QUETIAPINE FUMARATE [Suspect]
     Dates: end: 20090525
  5. TAKEPRON [Concomitant]
     Dosage: FORMULATION: TABS
  6. AKINETON [Concomitant]
     Dosage: FORMULATION:INJECTION ALSO TAKEN AS TABLET FORMULATION (1MG)
     Dates: start: 20090526, end: 20090526
  7. LODOPIN [Concomitant]
     Dosage: FORMULATION: TABS
     Dates: start: 20090424, end: 20090608
  8. CONTOMIN [Concomitant]
     Dosage: FORMULATION: TABS
     Dates: start: 20090413, end: 20090611
  9. THEO-DUR [Concomitant]
     Dosage: FORMULATION: TABS
  10. KIPRESS [Concomitant]
     Dosage: FORMULATION: TABS KIPRESS JPN
  11. GASMOTIN [Concomitant]
     Dosage: FORMULATION: TABS
  12. MAGNESIUM OXIDE [Concomitant]
     Dosage: FORMULATION: POWDER
  13. VALERIN [Concomitant]
     Dosage: FORMULATION: TABS
     Dates: start: 20090526, end: 20090526

REACTIONS (2)
  - AGITATION [None]
  - PERSECUTORY DELUSION [None]
